FAERS Safety Report 8371159-9 (Version None)
Quarter: 2012Q2

REPORT INFORMATION
  Report Type: 
  Country: None (occurrence: None)
  Receive Date: 20120518
  Receipt Date: 20120509
  Transmission Date: 20120825
  Serious: Yes (Disabling, Other)
  Sender: FDA-Public Use
  Company Number: US-ASTRAZENECA-2011SE15812

PATIENT
  Age: 64 Year
  Sex: Female

DRUGS (2)
  1. NEXIUM [Suspect]
     Route: 048
  2. BISMUTH SUBSALICYLATE [Concomitant]

REACTIONS (8)
  - GASTRIC HAEMORRHAGE [None]
  - GLAUCOMA [None]
  - MELAENA [None]
  - ABDOMINAL PAIN UPPER [None]
  - INTENTIONAL DRUG MISUSE [None]
  - PAIN [None]
  - LARGE INTESTINAL HAEMORRHAGE [None]
  - VOMITING PROJECTILE [None]
